FAERS Safety Report 4701722-5 (Version None)
Quarter: 2005Q2

REPORT INFORMATION
  Report Type: 
  Country: None (occurrence: None)
  Receive Date: 20050627
  Receipt Date: 20050613
  Transmission Date: 20051028
  Serious: Yes (Other)
  Sender: FDA-Public Use
  Company Number: 2005083576

PATIENT
  Age: 25 Year
  Sex: Male

DRUGS (4)
  1. ZELDOX                  (ZIPRASIDONE) [Suspect]
     Indication: SCHIZOPHRENIA, PARANOID TYPE
     Dosage: 120 MG (1 IN 1 D), ORAL
     Route: 048
     Dates: start: 20050314, end: 20050322
  2. ABILIFY [Suspect]
     Indication: SCHIZOPHRENIA, PARANOID TYPE
     Dosage: 15 MG (1 IN 1 D), ORAL
     Route: 048
     Dates: start: 20050321
  3. ZOLPIDEM TARTRATE [Suspect]
     Indication: SCHIZOPHRENIA, PARANOID TYPE
     Dosage: 10 MG (1 IN 1 D), ORAL
     Route: 048
     Dates: start: 20050314
  4. LORAZEPAM [Suspect]
     Indication: SCHIZOPHRENIA, PARANOID TYPE
     Dosage: 5 MG (1 IN 1 D), ORAL
     Route: 048
     Dates: start: 20050225

REACTIONS (5)
  - DRUG INEFFECTIVE [None]
  - EXTRAPYRAMIDAL DISORDER [None]
  - HALLUCINATION, VISUAL [None]
  - OROPHARYNGEAL SPASM [None]
  - THINKING ABNORMAL [None]
